FAERS Safety Report 26034769 (Version 1)
Quarter: 2025Q4

REPORT INFORMATION
  Report Type: Spontaneous
  Country: US (occurrence: None)
  Receive Date: 20251112
  Receipt Date: 20251112
  Transmission Date: 20260118
  Serious: No
  Sender: INCYTE
  Company Number: US-INCYTE CORPORATION-2025IN012155

PATIENT

DRUGS (3)
  1. JAKAFI [Suspect]
     Active Substance: RUXOLITINIB
     Indication: Myelofibrosis
     Dosage: 25 MILLIGRAM, QD (TAKE 1 TABLET BY MOUTH 1 TIME A DAY ALTERNATING EVERY OTHER DAY WITH 1 TABLET 2 TIMES A DAY.)
     Route: 065
  2. JAKAFI [Suspect]
     Active Substance: RUXOLITINIB
     Indication: Myeloproliferative neoplasm
     Dosage: 25 MILLIGRAM, BID (TAKE 1 TABLET BY MOUTH 1 TIME A DAY ALTERNATING EVERY OTHER DAY WITH 1 TABLET 2 TIMES A DAY) ALTERNATIIG EVERY OTHER DAY
     Route: 065
  3. JAKAFI [Suspect]
     Active Substance: RUXOLITINIB
     Indication: Thrombocytopenia

REACTIONS (2)
  - Fatigue [Unknown]
  - Off label use [Unknown]
